FAERS Safety Report 8048528-X (Version None)
Quarter: 2012Q1

REPORT INFORMATION
  Report Type: 
  Country: None (occurrence: None)
  Receive Date: 20120110
  Receipt Date: 20111229
  Transmission Date: 20120608
  Serious: Yes (Hospitalization)
  Sender: FDA-Public Use
  Company Number: 2011AP003098

PATIENT
  Age: 43 Year
  Sex: Male

DRUGS (34)
  1. ARSENIC TRIOXIDE [Suspect]
     Indication: ACUTE PROMYELOCYTIC LEUKAEMIA
     Dosage: 0.15 MG/KG;IV
     Route: 042
     Dates: start: 20060929
  2. DAUNORUBICIN HCL [Concomitant]
  3. CALCIUM ACETATE [Concomitant]
  4. FLUTICASONE PROPIONATE [Concomitant]
  5. LORAZEPAM [Concomitant]
  6. ALLOPURINOL [Concomitant]
  7. ALBUTEROL SULFATE AND IPRATROPIUM BROMIDE [Concomitant]
  8. OXYCODONE HCL [Concomitant]
  9. VERAPAMIL [Concomitant]
  10. LINEZOLID [Concomitant]
  11. DOCUSATE [Concomitant]
  12. ZOLPIDEM [Suspect]
  13. ALPRAZOLAM [Concomitant]
  14. AZTREONAM [Concomitant]
  15. POTASSIUM CHLORIDE [Concomitant]
  16. FLUVOXAMINE MALEATE [Suspect]
     Indication: PRODUCT USED FOR UNKNOWN INDICATION
     Dosage: 100 MG;AM
  17. FLUCONAZOLE [Suspect]
     Indication: PRODUCT USED FOR UNKNOWN INDICATION
  18. OLANZAPINE [Suspect]
     Indication: ANXIETY
     Dosage: 1.25 MG;HS ; 2.5 MG;HS ; 2.5 MG;BID
     Dates: start: 20061011
  19. OLANZAPINE [Suspect]
     Indication: OBSESSIVE THOUGHTS
     Dosage: 1.25 MG;HS ; 2.5 MG;HS ; 2.5 MG;BID
     Dates: start: 20061011
  20. OLANZAPINE [Suspect]
     Indication: CONDITION AGGRAVATED
     Dosage: 1.25 MG;HS ; 2.5 MG;HS ; 2.5 MG;BID
     Dates: start: 20061011
  21. OLANZAPINE [Suspect]
     Indication: DEPRESSION
     Dosage: 1.25 MG;HS ; 2.5 MG;HS ; 2.5 MG;BID
     Dates: start: 20061011
  22. OLANZAPINE [Suspect]
     Indication: ANXIETY
     Dosage: 1.25 MG;HS ; 2.5 MG;HS ; 2.5 MG;BID
     Dates: start: 20061015
  23. OLANZAPINE [Suspect]
     Indication: OBSESSIVE THOUGHTS
     Dosage: 1.25 MG;HS ; 2.5 MG;HS ; 2.5 MG;BID
     Dates: start: 20061015
  24. OLANZAPINE [Suspect]
     Indication: CONDITION AGGRAVATED
     Dosage: 1.25 MG;HS ; 2.5 MG;HS ; 2.5 MG;BID
     Dates: start: 20061015
  25. OLANZAPINE [Suspect]
     Indication: DEPRESSION
     Dosage: 1.25 MG;HS ; 2.5 MG;HS ; 2.5 MG;BID
     Dates: start: 20061015
  26. OLANZAPINE [Suspect]
     Indication: ANXIETY
     Dosage: 1.25 MG;HS ; 2.5 MG;HS ; 2.5 MG;BID
     Dates: start: 20061018
  27. OLANZAPINE [Suspect]
     Indication: OBSESSIVE THOUGHTS
     Dosage: 1.25 MG;HS ; 2.5 MG;HS ; 2.5 MG;BID
     Dates: start: 20061018
  28. OLANZAPINE [Suspect]
     Indication: CONDITION AGGRAVATED
     Dosage: 1.25 MG;HS ; 2.5 MG;HS ; 2.5 MG;BID
     Dates: start: 20061018
  29. OLANZAPINE [Suspect]
     Indication: DEPRESSION
     Dosage: 1.25 MG;HS ; 2.5 MG;HS ; 2.5 MG;BID
     Dates: start: 20061018
  30. ESOMEPRAZOLE SODIUM [Concomitant]
  31. SALMETEROL [Concomitant]
  32. CYTARABINE [Concomitant]
  33. ACYCLOVIR [Concomitant]
  34. VANCOMYCIN [Concomitant]

REACTIONS (18)
  - CONDITION AGGRAVATED [None]
  - OBSESSIVE THOUGHTS [None]
  - DRUG INTERACTION [None]
  - ELECTROCARDIOGRAM QT PROLONGED [None]
  - TREMOR [None]
  - ANXIETY [None]
  - LABORATORY TEST INTERFERENCE [None]
  - STAPHYLOCOCCUS TEST POSITIVE [None]
  - AGITATION [None]
  - DRUG WITHDRAWAL SYNDROME [None]
  - ACUTE PROMYELOCYTIC LEUKAEMIA [None]
  - HYPERHIDROSIS [None]
  - HEART RATE INCREASED [None]
  - DEPRESSION [None]
  - DISEASE RECURRENCE [None]
  - CHILLS [None]
  - LEUKAEMIA RECURRENT [None]
  - INFUSION RELATED REACTION [None]
